FAERS Safety Report 9763414 (Version 1)
Quarter: 2013Q4

REPORT INFORMATION
  Report Type: Spontaneous
  Country: US (occurrence: US)
  Receive Date: 20131216
  Receipt Date: 20131216
  Transmission Date: 20140711
  Serious: No
  Sender: FDA-Public Use
  Company Number: US-BIOGENIDEC-2013BI109145

PATIENT
  Age: 63 Year
  Sex: Female

DRUGS (3)
  1. TECFIDERA [Suspect]
     Indication: MULTIPLE SCLEROSIS
     Route: 048
     Dates: start: 20130815, end: 20130821
  2. TECFIDERA [Suspect]
     Indication: MULTIPLE SCLEROSIS
     Route: 048
     Dates: start: 20130822, end: 201310
  3. TECFIDERA [Suspect]
     Indication: MULTIPLE SCLEROSIS
     Route: 048
     Dates: start: 201309, end: 20130930

REACTIONS (4)
  - Hypersensitivity [Recovered/Resolved]
  - Fall [Recovered/Resolved]
  - Hand fracture [Not Recovered/Not Resolved]
  - Multiple sclerosis relapse [Recovered/Resolved]
